FAERS Safety Report 4735538-0 (Version None)
Quarter: 2005Q3

REPORT INFORMATION
  Report Type: 
  Country: None (occurrence: None)
  Receive Date: 20050803
  Receipt Date: 20050713
  Transmission Date: 20060218
  Serious: Yes (Other)
  Sender: FDA-Public Use
  Company Number: US_000644031

PATIENT
  Age: 68 Year
  Sex: Male
  Weight: 80 kg

DRUGS (4)
  1. HUMULIN L [Suspect]
     Indication: DIABETES MELLITUS
     Dosage: 27 U/1 IN THE MORNING
     Dates: start: 19750101
  2. HUMULIN R [Suspect]
     Indication: DIABETES MELLITUS
     Dates: start: 19980101
  3. HUMULIN N [Suspect]
     Indication: DIABETES MELLITUS
     Dosage: 20 U/1 DAY
     Dates: start: 19980101
  4. INSULIN [Suspect]
     Indication: DIABETES MELLITUS
     Dates: end: 19980101

REACTIONS (6)
  - BLOOD GLUCOSE DECREASED [None]
  - DRUG INEFFECTIVE [None]
  - HYPERGLYCAEMIA [None]
  - INSULIN RESISTANCE [None]
  - RENAL IMPAIRMENT [None]
  - VISUAL DISTURBANCE [None]
